FAERS Safety Report 16666106 (Version 1)
Quarter: 2019Q3

REPORT INFORMATION
  Report Type: Spontaneous
  Country: IN (occurrence: IN)
  Receive Date: 20190805
  Receipt Date: 20190805
  Transmission Date: 20191004
  Serious: Yes (Life-Threatening, Hospitalization, Other)
  Sender: FDA-Public Use
  Company Number: IN-ACCORD-149998

PATIENT
  Age: 7 Year
  Sex: Male

DRUGS (17)
  1. CISPLATIN. [Suspect]
     Active Substance: CISPLATIN
     Indication: METASTASES TO BONE
     Dates: start: 2013
  2. ETOPOSIDE. [Suspect]
     Active Substance: ETOPOSIDE
     Indication: CONGENITAL RETINOBLASTOMA
     Dosage: ADJUVANT CHEMOTHERAPY
     Dates: start: 2013
  3. THIOTEPA. [Suspect]
     Active Substance: THIOTEPA
     Indication: METASTASES TO BONE
     Dosage: HIGH DOSE CHEMOTHERAPY 300 MG/M2/D D-5 TO D-3
  4. VINCRISTINE [Suspect]
     Active Substance: VINCRISTINE
     Indication: METASTASES TO BONE
     Dosage: ADJUVANT CHEMOTHERAPY
  5. ETOPOSIDE. [Suspect]
     Active Substance: ETOPOSIDE
     Indication: METASTASES TO BONE
     Dosage: ADJUVANT CHEMOTHERAPY
  6. CARBOPLATIN. [Suspect]
     Active Substance: CARBOPLATIN
     Indication: METASTASES TO BONE
     Dosage: ADJUVANT CHEMOTHERAPY
  7. CALCIUM [Concomitant]
     Active Substance: CALCIUM
     Indication: RENAL TUBULAR DISORDER
  8. ETOPOSIDE. [Suspect]
     Active Substance: ETOPOSIDE
     Indication: CONGENITAL RETINOBLASTOMA
     Dosage: HDCT 250 MG/M2/D D-5 TO D-3
  9. ETOPOSIDE. [Suspect]
     Active Substance: ETOPOSIDE
     Indication: CONGENITAL RETINOBLASTOMA
     Dates: start: 2013
  10. FILGRASTIM/GRANULOCYTE COLONY STIMULATING/LENOGRASTIM [Concomitant]
  11. CYCLOPHOSPHAMIDE/CYCLOPHOSPHAMIDE MONOHYDRATE [Suspect]
     Active Substance: CYCLOPHOSPHAMIDE
     Indication: METASTASES TO BONE
     Dates: start: 2013
  12. VINCRISTINE [Suspect]
     Active Substance: VINCRISTINE
     Indication: METASTASES TO BONE
     Dates: start: 2013
  13. VINCRISTINE [Suspect]
     Active Substance: VINCRISTINE
     Indication: CONGENITAL RETINOBLASTOMA
     Dosage: ADJUVANT CHEMOTHERAPY
  14. CARBOPLATIN. [Suspect]
     Active Substance: CARBOPLATIN
     Indication: CONGENITAL RETINOBLASTOMA
     Dosage: ADJUVANT CHEMOTHERAPY
  15. POTASSIUM CHLORIDE. [Concomitant]
     Active Substance: POTASSIUM CHLORIDE
     Indication: RENAL TUBULAR DISORDER
  16. MAGNESIUM [Concomitant]
     Active Substance: MAGNESIUM
     Indication: RENAL TUBULAR DISORDER
     Dosage: MAGNESIUM SUPPLEMENTATION
  17. CARBOPLATIN. [Suspect]
     Active Substance: CARBOPLATIN
     Indication: METASTASES TO BONE
     Dosage: HIGH DOSE CHEMOTHERAPY 500 MG/M2/D D-8 TO D-6

REACTIONS (8)
  - Status epilepticus [Recovered/Resolved]
  - Cardiac arrest [Recovered/Resolved]
  - Electrolyte imbalance [Recovered/Resolved]
  - Hyponatraemia [Recovered/Resolved]
  - Hypomagnesaemia [Recovered/Resolved]
  - Bone marrow failure [Unknown]
  - Hypokalaemia [Recovered/Resolved]
  - Hypocalcaemia [Recovered/Resolved]
